FAERS Safety Report 7664771-3 (Version None)
Quarter: 2011Q3

REPORT INFORMATION
  Report Type: 
  Country: None (occurrence: None)
  Receive Date: 20110806
  Receipt Date: 20110208
  Transmission Date: 20111222
  Serious: No
  Sender: FDA-Public Use
  Company Number: US-ABBOTT-11P-163-0701930-00

PATIENT
  Sex: Male
  Weight: 88.53 kg

DRUGS (3)
  1. VASOTEC [Concomitant]
     Indication: PRODUCT USED FOR UNKNOWN INDICATION
  2. LIPITOR [Concomitant]
     Indication: PRODUCT USED FOR UNKNOWN INDICATION
  3. NIASPAN [Suspect]
     Indication: BLOOD CHOLESTEROL INCREASED
     Dates: start: 20101101, end: 20110126

REACTIONS (2)
  - RASH PRURITIC [None]
  - DISCOMFORT [None]
